FAERS Safety Report 6762386-2 (Version None)
Quarter: 2010Q2

REPORT INFORMATION
  Report Type: 
  Country: None (occurrence: None)
  Receive Date: 20100609
  Receipt Date: 20100602
  Transmission Date: 20101027
  Serious: Yes (Life-Threatening, Other)
  Sender: FDA-Public Use
  Company Number: DE-ELI_LILLY_AND_COMPANY-DE201004004221

PATIENT
  Sex: Male

DRUGS (5)
  1. BYETTA [Suspect]
     Indication: TYPE 2 DIABETES MELLITUS
     Dosage: 10 UG, 2/D
     Route: 058
     Dates: start: 20090201, end: 20090517
  2. LISINOPRIL [Concomitant]
     Dosage: UNK, UNKNOWN
  3. OMEPRAZOLE [Concomitant]
     Dosage: UNK, UNKNOWN
  4. GLIMEPIRIDE [Concomitant]
     Dosage: UNK, UNKNOWN
  5. METFORMIN HCL [Concomitant]
     Dosage: UNK, UNKNOWN

REACTIONS (2)
  - CORONARY ARTERY DISEASE [None]
  - MYOCARDIAL INFARCTION [None]
